FAERS Safety Report 9059798 (Version 1)
Quarter: 2013Q1

REPORT INFORMATION
  Report Type: Spontaneous
  Country: US (occurrence: None)
  Receive Date: 20130118
  Receipt Date: 20130118
  Transmission Date: 20140127
  Serious: Yes (Death)
  Sender: FDA-Public Use
  Company Number: AUR-APL-2013-00236

PATIENT
  Age: 22 Year
  Sex: Male

DRUGS (2)
  1. DIVALPROEX [Suspect]
     Indication: PRODUCT USED FOR UNKNOWN INDICATION
  2. ACETAMINOPHEN\HYDROCODONE [Suspect]
     Route: 048

REACTIONS (2)
  - Drug abuse [None]
  - Toxicity to various agents [None]
